FAERS Safety Report 5049733-7 (Version None)
Quarter: 2006Q3

REPORT INFORMATION
  Report Type: 
  Country: None (occurrence: None)
  Receive Date: 20060707
  Receipt Date: 20060624
  Transmission Date: 20061208
  Serious: Yes (Other)
  Sender: FDA-Public Use
  Company Number: 2006081207

PATIENT
  Age: 30 Year
  Sex: Male
  Weight: 93.8946 kg

DRUGS (2)
  1. CALADRYL [Suspect]
     Indication: DERMATITIS CONTACT
     Dosage: 5 TO 15 ML INJECTED TWICE DAILY
     Dates: start: 20060613, end: 20060624
  2. PIRBUTEROL ACETATE [Concomitant]

REACTIONS (5)
  - DIZZINESS [None]
  - HEADACHE [None]
  - INCORRECT ROUTE OF DRUG ADMINISTRATION [None]
  - MOTION SICKNESS [None]
  - PHARYNGOLARYNGEAL PAIN [None]
